FAERS Safety Report 20938230 (Version 1)
Quarter: 2022Q2

REPORT INFORMATION
  Report Type: Spontaneous
  Country: US (occurrence: None)
  Receive Date: 20220608
  Receipt Date: 20220608
  Transmission Date: 20220721
  Serious: No
  Sender: FDA-Public Use
  Company Number: None

PATIENT
  Age: 49 Year
  Sex: Female
  Weight: 69.75 kg

DRUGS (13)
  1. PAXLOVID [Suspect]
     Active Substance: NIRMATRELVIR\RITONAVIR
     Indication: COVID-19 treatment
     Dosage: OTHER QUANTITY : 3 TABLET(S);?FREQUENCY : EVERY 12 HOURS;?
     Route: 048
     Dates: start: 20220606
  2. Adderall XR 25 mg [Concomitant]
  3. ALLEGRA [Concomitant]
     Active Substance: FEXOFENADINE HYDROCHLORIDE
  4. ASPIRIN [Concomitant]
     Active Substance: ASPIRIN
  5. CALCIUM [Concomitant]
     Active Substance: CALCIUM
  6. ceritizine hydrochloride [Concomitant]
  7. COQ-10 [Concomitant]
  8. VITAMIN D3 [Concomitant]
     Active Substance: CHOLECALCIFEROL
  9. Estriadiol/Noreth 1/0.5mg [Concomitant]
  10. FISH OIL [Concomitant]
     Active Substance: FISH OIL
  11. MAGNESIUM OXIDE [Concomitant]
  12. METHYL B12 [Concomitant]
  13. TruNiagen [Concomitant]

REACTIONS (2)
  - Dysgeusia [None]
  - Dysgeusia [None]

NARRATIVE: CASE EVENT DATE: 20220606
